FAERS Safety Report 11634587 (Version 2)
Quarter: 2016Q2

REPORT INFORMATION
  Report Type: Spontaneous
  Country: JP (occurrence: JP)
  Receive Date: 20151015
  Receipt Date: 20160504
  Transmission Date: 20160815
  Serious: Yes (Other)
  Sender: FDA-Public Use
  Company Number: JP-GILEAD-2015-0176696

PATIENT
  Age: 76 Year
  Sex: Female

DRUGS (1)
  1. HEPSERA [Suspect]
     Active Substance: ADEFOVIR DIPIVOXIL
     Indication: CHRONIC HEPATITIS B
     Dosage: 10 MG, 1D
     Route: 048
     Dates: start: 2006

REACTIONS (10)
  - Pain in extremity [Recovering/Resolving]
  - Back pain [Unknown]
  - Multiple fractures [Unknown]
  - Osteomalacia [Recovering/Resolving]
  - Hypophosphataemia [Recovered/Resolved]
  - Gait disturbance [Unknown]
  - Spinal deformity [Unknown]
  - Lumbar spinal stenosis [Unknown]
  - Mobility decreased [Unknown]
  - Fanconi syndrome acquired [Recovering/Resolving]

NARRATIVE: CASE EVENT DATE: 2010
